FAERS Safety Report 6248910-7 (Version None)
Quarter: 2009Q2

REPORT INFORMATION
  Report Type: 
  Country: None (occurrence: None)
  Receive Date: 20090629
  Receipt Date: 20090617
  Transmission Date: 20091009
  Serious: Yes (Death, Other)
  Sender: FDA-Public Use
  Company Number: GB-PFIZER INC-2009207834

PATIENT

DRUGS (1)
  1. SUNITINIB MALATE [Suspect]
     Dosage: 25 MG, 1X/DAY

REACTIONS (5)
  - CHEST PAIN [None]
  - DEATH [None]
  - DISEASE PROGRESSION [None]
  - MEDIASTINAL HAEMORRHAGE [None]
  - TUMOUR NECROSIS [None]
